FAERS Safety Report 7037273-5 (Version None)
Quarter: 2010Q4

REPORT INFORMATION
  Report Type: 
  Country: None (occurrence: None)
  Receive Date: 20101011
  Receipt Date: 20100929
  Transmission Date: 20110411
  Serious: Yes (Hospitalization, Other)
  Sender: FDA-Public Use
  Company Number: BR-ELI_LILLY_AND_COMPANY-BR201009002966

PATIENT
  Sex: Female

DRUGS (9)
  1. FORTEO [Suspect]
     Dosage: UNK, DAILY (1/D)
     Route: 058
     Dates: start: 20100801
  2. FORTEO [Suspect]
     Dosage: UNK, DAILY (1/D)
     Route: 058
     Dates: start: 20100910
  3. CARBAMAZEPINA [Concomitant]
     Dosage: 400 MG, UNKNOWN
     Route: 065
  4. RANITIDINA [Concomitant]
     Dosage: UNK, UNKNOWN
     Route: 065
  5. DICLOFENACO                        /00372302/ [Concomitant]
     Dosage: 100 MG, UNKNOWN
     Route: 065
  6. METOTREXATO [Concomitant]
     Dosage: 100 MG, UNKNOWN
     Route: 065
  7. PREDNISOLONE [Concomitant]
     Dosage: UNK, UNKNOWN
     Route: 065
  8. AMITRIPTILINA [Concomitant]
     Dosage: 25 MG, 2/D
     Route: 065
  9. CHLOROQUINE PHOSPHATE [Concomitant]
     Dosage: 20 MG, UNKNOWN
     Route: 065

REACTIONS (3)
  - CEREBROVASCULAR ACCIDENT [None]
  - GAIT DISTURBANCE [None]
  - SPEECH DISORDER [None]
